FAERS Safety Report 9611572 (Version 6)
Quarter: 2014Q3

REPORT INFORMATION
  Report Type: Report from Study
  Country: DE (occurrence: DE)
  Receive Date: 20131010
  Receipt Date: 20140707
  Transmission Date: 20150326
  Serious: Yes (Hospitalization)
  Sender: FDA-Public Use
  Company Number: PHHY2013DE113444

PATIENT
  Age: 44 Year
  Sex: Female

DRUGS (1)
  1. GILENYA [Suspect]
     Active Substance: FINGOLIMOD HYDROCHLORIDE
     Indication: MULTIPLE SCLEROSIS
     Dosage: 0.5 MG, QOD
     Route: 048
     Dates: start: 20130515

REACTIONS (12)
  - Periarthritis [Recovered/Resolved with Sequelae]
  - Upper limb fracture [Not Recovered/Not Resolved]
  - Pancreatic injury [Not Recovered/Not Resolved]
  - Traumatic lung injury [Not Recovered/Not Resolved]
  - Depression [Unknown]
  - Pulmonary contusion [Recovered/Resolved with Sequelae]
  - Pneumothorax [Recovered/Resolved with Sequelae]
  - Road traffic accident [Recovered/Resolved]
  - Prescribed underdose [Unknown]
  - Humerus fracture [Recovered/Resolved with Sequelae]
  - Splenic rupture [Recovered/Resolved with Sequelae]
  - Suicidal ideation [Recovered/Resolved]

NARRATIVE: CASE EVENT DATE: 20130515
